FAERS Safety Report 5870976-4 (Version None)
Quarter: 2008Q3

REPORT INFORMATION
  Report Type: 
  Country: None (occurrence: None)
  Receive Date: 20080904
  Receipt Date: 20080825
  Transmission Date: 20090109
  Serious: Yes (Hospitalization)
  Sender: FDA-Public Use
  Company Number: FR-BOEHRINGER INGELHEIM GMBH, GERMANY-2008-FF-00580FF

PATIENT
  Sex: Male

DRUGS (8)
  1. MECIR LP 0.4 [Suspect]
     Indication: BENIGN PROSTATIC HYPERPLASIA
     Route: 048
     Dates: start: 20080613, end: 20080706
  2. ZYLORIC [Concomitant]
     Route: 048
     Dates: start: 20080521, end: 20080623
  3. ZYLORIC [Concomitant]
     Route: 048
     Dates: start: 20080702, end: 20080705
  4. NEXIUM [Concomitant]
     Route: 048
     Dates: start: 20080521, end: 20080701
  5. THALIDOMIDE [Concomitant]
     Indication: MULTIPLE MYELOMA
     Route: 048
     Dates: start: 20080609, end: 20080627
  6. THALIDOMIDE [Concomitant]
     Route: 048
     Dates: start: 20080701, end: 20080704
  7. OROKEN [Concomitant]
     Indication: INFECTION PROPHYLAXIS
     Route: 048
     Dates: start: 20080609, end: 20080704
  8. PROSCAR [Concomitant]
     Route: 048
     Dates: start: 20080613, end: 20080620

REACTIONS (2)
  - DRUG RASH WITH EOSINOPHILIA AND SYSTEMIC SYMPTOMS [None]
  - VARICELLA [None]
